FAERS Safety Report 5467059-4 (Version None)
Quarter: 2007Q3

REPORT INFORMATION
  Report Type: 
  Country: None (occurrence: None)
  Receive Date: 20070925
  Receipt Date: 20070924
  Transmission Date: 20080115
  Serious: Yes (Hospitalization)
  Sender: FDA-Public Use
  Company Number: D0054645A

PATIENT
  Age: 16 Year
  Sex: Female

DRUGS (2)
  1. ELONTRIL [Suspect]
     Dosage: 300MG SEE DOSAGE TEXT
     Route: 048
     Dates: start: 20070923, end: 20070923
  2. DOMPERIDON [Suspect]
     Dosage: 10MG SEE DOSAGE TEXT
     Route: 048
     Dates: start: 20070923, end: 20070923

REACTIONS (3)
  - INTENTIONAL OVERDOSE [None]
  - NO ADVERSE REACTION [None]
  - SUICIDE ATTEMPT [None]
